FAERS Safety Report 11414814 (Version 4)
Quarter: 2016Q1

REPORT INFORMATION
  Report Type: Report from Study
  Country: FR (occurrence: FR)
  Receive Date: 20150825
  Receipt Date: 20160308
  Transmission Date: 20160525
  Serious: Yes (Other)
  Sender: FDA-Public Use
  Company Number: FR-ROCHE-1622752

PATIENT
  Age: 51 Year
  Sex: Female

DRUGS (4)
  1. BETADINE [Concomitant]
     Active Substance: POVIDONE-IODINE
  2. RANIBIZUMAB [Suspect]
     Active Substance: RANIBIZUMAB
     Indication: VISUAL IMPAIRMENT
     Dosage: IN RIGHT EYE.
     Route: 050
     Dates: start: 20141006
  3. RANIBIZUMAB [Suspect]
     Active Substance: RANIBIZUMAB
     Dosage: IN RIGHT EYE.
     Route: 050
     Dates: start: 20141205
  4. RANIBIZUMAB [Suspect]
     Active Substance: RANIBIZUMAB
     Indication: RETINAL VEIN OCCLUSION
     Dosage: IN RIGHT EYE.
     Route: 050
     Dates: start: 20141107

REACTIONS (1)
  - Retinal ischaemia [Recovered/Resolved with Sequelae]

NARRATIVE: CASE EVENT DATE: 20150106
